APPROVED DRUG PRODUCT: SUCRALFATE
Active Ingredient: SUCRALFATE
Strength: 1GM
Dosage Form/Route: TABLET;ORAL
Application: A074415 | Product #001 | TE Code: AB
Applicant: CHARTWELL RX SCIENCES LLC
Approved: Jun 8, 1998 | RLD: No | RS: No | Type: RX